FAERS Safety Report 5377138-8 (Version None)
Quarter: 2007Q2

REPORT INFORMATION
  Report Type: 
  Country: None (occurrence: None)
  Receive Date: 20070530
  Receipt Date: 20070228
  Transmission Date: 20071010
  Serious: No
  Sender: FDA-Public Use
  Company Number: 2007PV030822

PATIENT
  Age: 58 Year
  Sex: Female
  Weight: 74.3899 kg

DRUGS (4)
  1. BYETTA [Suspect]
     Indication: DIABETES MELLITUS NON-INSULIN-DEPENDENT
     Dosage: 5 MCG;BID;SC; 10 MCG;BID;SC
     Route: 058
     Dates: start: 20061125, end: 20070110
  2. BYETTA [Suspect]
     Indication: DIABETES MELLITUS NON-INSULIN-DEPENDENT
     Dosage: 5 MCG;BID;SC; 10 MCG;BID;SC
     Route: 058
     Dates: start: 20070111, end: 20070208
  3. BYETTA [Suspect]
     Indication: DIABETES MELLITUS NON-INSULIN-DEPENDENT
     Dosage: 5 MCG;BID;SC; 10 MCG;BID;SC
     Route: 058
     Dates: start: 20070209
  4. LANTUS [Concomitant]

REACTIONS (3)
  - DECREASED APPETITE [None]
  - VOMITING [None]
  - WEIGHT DECREASED [None]
